FAERS Safety Report 4287384-2 (Version None)
Quarter: 2004Q1

REPORT INFORMATION
  Report Type: 
  Country: None (occurrence: None)
  Receive Date: 20040209
  Receipt Date: 20030617
  Transmission Date: 20041129
  Serious: No
  Sender: FDA-Public Use
  Company Number: US-GLAXOSMITHKLINE-A0412696A

PATIENT
  Age: 50 Year
  Sex: Female

DRUGS (3)
  1. PAXIL CR [Suspect]
     Indication: DEPRESSION
     Dosage: 25MG PER DAY
     Route: 048
     Dates: start: 20030301, end: 20030606
  2. MEVACOR [Suspect]
  3. CENESTIN [Suspect]

REACTIONS (5)
  - ARTHRALGIA [None]
  - CHOKING SENSATION [None]
  - DIZZINESS [None]
  - RESTLESS LEGS SYNDROME [None]
  - VERTIGO [None]
